FAERS Safety Report 5025916-7 (Version None)
Quarter: 2006Q2

REPORT INFORMATION
  Report Type: 
  Country: None (occurrence: None)
  Receive Date: 20060614
  Receipt Date: 20060608
  Transmission Date: 20061013
  Serious: Yes (Hospitalization)
  Sender: FDA-Public Use
  Company Number: US-GLAXOSMITHKLINE-A0608395A

PATIENT
  Age: 65 Year
  Sex: Female

DRUGS (2)
  1. PAXIL [Suspect]
     Indication: DEPRESSION
     Dosage: 60MG PER DAY
     Route: 048
  2. DIFLUCAN [Concomitant]

REACTIONS (4)
  - AGITATION [None]
  - DRUG LEVEL INCREASED [None]
  - DRUG TOXICITY [None]
  - HYPERREFLEXIA [None]
